APPROVED DRUG PRODUCT: ITRACONAZOLE
Active Ingredient: ITRACONAZOLE
Strength: 100MG
Dosage Form/Route: CAPSULE;ORAL
Application: A203445 | Product #001
Applicant: JUBILANT GENERICS LTD
Approved: Feb 23, 2017 | RLD: No | RS: No | Type: DISCN